FAERS Safety Report 5493155-1 (Version None)
Quarter: 2007Q4

REPORT INFORMATION
  Report Type: 
  Country: None (occurrence: None)
  Receive Date: 20071019
  Receipt Date: 20071003
  Transmission Date: 20080405
  Serious: Yes (Other)
  Sender: FDA-Public Use
  Company Number: 2007JP004621

PATIENT
  Age: 49 Year
  Sex: Female

DRUGS (2)
  1. PROGRAF [Suspect]
     Indication: LUPUS NEPHRITIS
  2. PREDNISOLONE [Concomitant]
     Route: 048

REACTIONS (3)
  - CONDITION AGGRAVATED [None]
  - PNEUMONIA [None]
  - SYSTEMIC LUPUS ERYTHEMATOSUS [None]
